FAERS Safety Report 9163371 (Version 1)
Quarter: 2013Q1

REPORT INFORMATION
  Report Type: Spontaneous
  Country: NL (occurrence: None)
  Receive Date: 20130221
  Receipt Date: 20130221
  Transmission Date: 20140127
  Serious: Yes (Hospitalization)
  Sender: FDA-Public Use
  Company Number: IMP_06558_2013

PATIENT
  Age: 62 Year
  Sex: Female

DRUGS (1)
  1. OMEPRAZOLE [Suspect]
     Indication: BARRETT^S OESOPHAGUS
     Dosage: (40 MG, [PER DAY],) (13 YEARS)

REACTIONS (8)
  - Hypomagnesaemia [None]
  - Diarrhoea [None]
  - Giardiasis [None]
  - Hypocalcaemia [None]
  - Hypokalaemia [None]
  - Electrocardiogram ST segment depression [None]
  - Electrocardiogram QT prolonged [None]
  - Lymphangiectasia intestinal [None]
